FAERS Safety Report 10234371 (Version 2)
Quarter: 2014Q2

REPORT INFORMATION
  Report Type: Report from Study
  Country: US (occurrence: US)
  Receive Date: 20140612
  Receipt Date: 20140612
  Transmission Date: 20141212
  Serious: Yes (Hospitalization)
  Sender: FDA-Public Use
  Company Number: US-MERCK-1312USA002865

PATIENT
  Age: 50 Year
  Sex: Female
  Weight: 50 kg

DRUGS (3)
  1. VORINOSTAT [Suspect]
     Indication: ACUTE MYELOID LEUKAEMIA
     Dosage: 100 MG, BID, BEGINNING ON DAY -10 THROUGH 100
     Route: 048
     Dates: start: 20131106, end: 20131210
  2. METHOTREXATE [Suspect]
     Indication: ACUTE MYELOID LEUKAEMIA
     Dosage: 5 MG/M2 ON DAYS 1,3 6, 11
     Route: 042
     Dates: start: 20131027, end: 20131116
  3. TACROLIMUS [Suspect]
     Indication: ACUTE MYELOID LEUKAEMIA
     Dosage: 0.03 MG/KG IV OR 0.045 MG/KG PO BID BEGINNING ON DAY -3
     Route: 048
     Dates: start: 20131029, end: 20131204

REACTIONS (3)
  - Diarrhoea [Recovered/Resolved with Sequelae]
  - Abdominal pain [Recovered/Resolved with Sequelae]
  - Vomiting [Recovered/Resolved with Sequelae]
